FAERS Safety Report 5842266-7 (Version None)
Quarter: 2008Q3

REPORT INFORMATION
  Report Type: 
  Country: None (occurrence: None)
  Receive Date: 20080812
  Receipt Date: 20080729
  Transmission Date: 20090109
  Serious: Yes (Other)
  Sender: FDA-Public Use
  Company Number: US-ROCHE-578881

PATIENT
  Sex: Female

DRUGS (8)
  1. XELODA [Suspect]
     Indication: DRUG USE FOR UNKNOWN INDICATION
     Route: 048
  2. ELOXATIN [Suspect]
     Route: 042
     Dates: start: 20070504
  3. ELOXATIN [Suspect]
     Route: 042
     Dates: start: 20070727, end: 20070727
  4. ELOXATIN [Suspect]
     Route: 042
     Dates: end: 20070817
  5. EPIRUBICIN [Suspect]
     Route: 017
     Dates: start: 20070727, end: 20070727
  6. SLOW-FE [Concomitant]
  7. STOOL SOFTENER [Concomitant]
  8. PRILOSEC [Concomitant]
     Dates: start: 20060901

REACTIONS (4)
  - INJECTION SITE EXTRAVASATION [None]
  - INJECTION SITE PAIN [None]
  - INJECTION SITE SWELLING [None]
  - SOFT TISSUE NECROSIS [None]
